FAERS Safety Report 12372128 (Version 1)
Quarter: 2016Q2

REPORT INFORMATION
  Report Type: Spontaneous
  Country: US (occurrence: US)
  Receive Date: 20160516
  Receipt Date: 20160516
  Transmission Date: 20160815
  Serious: Yes (Other)
  Sender: FDA-Public Use
  Company Number: US-PFIZER INC-2016247925

PATIENT
  Age: 66 Year
  Sex: Female

DRUGS (11)
  1. NORCO [Concomitant]
     Active Substance: ACETAMINOPHEN\HYDROCODONE BITARTRATE
  2. ONDANSETRON [Concomitant]
     Active Substance: ONDANSETRON
  3. VALSARTAN. [Concomitant]
     Active Substance: VALSARTAN
  4. WARFARIN [Concomitant]
     Active Substance: WARFARIN
  5. IBRANCE [Suspect]
     Active Substance: PALBOCICLIB
     Dosage: 125 MG, CYCLIC (1 CAPSULE, DAILY FOR 21 DAYS ON AND 7 DAYS OFF)
     Route: 048
     Dates: start: 20160322
  6. ALLOPURINOL. [Concomitant]
     Active Substance: ALLOPURINOL
  7. LORAZEPAM. [Concomitant]
     Active Substance: LORAZEPAM
  8. FENOFIBRATE. [Concomitant]
     Active Substance: FENOFIBRATE
  9. FASLODEX [Concomitant]
     Active Substance: FULVESTRANT
  10. XGEVA [Concomitant]
     Active Substance: DENOSUMAB
  11. METOPROLOL. [Concomitant]
     Active Substance: METOPROLOL

REACTIONS (2)
  - Dehydration [Unknown]
  - Acute kidney injury [Unknown]

NARRATIVE: CASE EVENT DATE: 20160504
